FAERS Safety Report 7793806-2 (Version None)
Quarter: 2011Q4

REPORT INFORMATION
  Report Type: 
  Country: None (occurrence: None)
  Receive Date: 20111003
  Receipt Date: 20110921
  Transmission Date: 20120403
  Serious: Yes (Hospitalization, Other)
  Sender: FDA-Public Use
  Company Number: PHHY2011US45940

PATIENT
  Sex: Male

DRUGS (7)
  1. LOVAZA [Concomitant]
     Dosage: UNK UKN, UNK
  2. AMLODIPINE BESYLATE AND BENAZEPRIL HCL [Suspect]
     Dosage: 1 DF, QD
  3. LOTREL [Suspect]
     Indication: HYPERTENSION
     Dosage: 1 DF, QD
     Route: 048
  4. ASPIRIN [Concomitant]
     Dosage: UNK UKN, UNK
  5. CENTRUM [Concomitant]
     Dosage: UNK UKN, UNK
  6. CALCIUM CARBONATE [Concomitant]
     Dosage: UNK UKN, UNK
  7. ALENDRONATE SODIUM [Concomitant]
     Dosage: UNK UKN, QW

REACTIONS (4)
  - DRUG INEFFECTIVE [None]
  - CEREBROVASCULAR ACCIDENT [None]
  - BLOOD PRESSURE INCREASED [None]
  - DIZZINESS [None]
